FAERS Safety Report 5934244-4 (Version None)
Quarter: 2008Q4

REPORT INFORMATION
  Report Type: 
  Country: None (occurrence: None)
  Receive Date: 20081028
  Receipt Date: 20081028
  Transmission Date: 20090506
  Serious: Yes (Other)
  Sender: FDA-Public Use
  Company Number: None

PATIENT
  Age: 45 Year
  Sex: Female
  Weight: 53.0709 kg

DRUGS (2)
  1. GEODON [Suspect]
     Indication: MAJOR DEPRESSION
     Dosage: 80MG QHS PO
     Route: 048
     Dates: start: 20081025, end: 20081025
  2. GEODON [Suspect]
     Dosage: 40MG QHS PO
     Route: 048
     Dates: start: 20081026, end: 20081026

REACTIONS (1)
  - EXTRAPYRAMIDAL DISORDER [None]
